FAERS Safety Report 8567741-6 (Version None)
Quarter: 2012Q3

REPORT INFORMATION
  Report Type: 
  Country: None (occurrence: None)
  Receive Date: 20120803
  Receipt Date: 20120731
  Transmission Date: 20120928
  Serious: Yes (Life-Threatening, Hospitalization)
  Sender: FDA-Public Use
  Company Number: CA-JNJFOC-20120801249

PATIENT
  Age: 3 Day
  Sex: Male
  Weight: 3.7 kg

DRUGS (1)
  1. ACETAMINOPHEN W/ CODEINE [Suspect]
     Indication: EXPOSURE DURING BREAST FEEDING
     Dosage: 30MG CODEINE, 300 MG ACETAMINOPHEN
     Route: 063

REACTIONS (4)
  - DEPRESSED LEVEL OF CONSCIOUSNESS [None]
  - BREAST FEEDING [None]
  - LOSS OF CONSCIOUSNESS [None]
  - SOMNOLENCE [None]
